FAERS Safety Report 5648652-2 (Version None)
Quarter: 2008Q1

REPORT INFORMATION
  Report Type: 
  Country: None (occurrence: None)
  Receive Date: 20080304
  Receipt Date: 20080226
  Transmission Date: 20080703
  Serious: Yes (Death, Hospitalization)
  Sender: FDA-Public Use
  Company Number: A0711975A

PATIENT
  Age: 62 Year
  Sex: Male

DRUGS (2)
  1. ADVAIR DISKUS 100/50 [Suspect]
     Indication: EMPHYSEMA
     Route: 055
     Dates: start: 20070101
  2. VFEND [Concomitant]

REACTIONS (4)
  - DRUG ADMINISTRATION ERROR [None]
  - EMPHYSEMA [None]
  - PNEUMONIA [None]
  - PULMONARY MYCOSIS [None]
